FAERS Safety Report 5833554-9 (Version None)
Quarter: 2008Q3

REPORT INFORMATION
  Report Type: 
  Country: None (occurrence: None)
  Receive Date: 20080805
  Receipt Date: 20080731
  Transmission Date: 20090109
  Serious: Yes (Hospitalization)
  Sender: FDA-Public Use
  Company Number: US-SOLVAY-00208003426

PATIENT
  Sex: Male

DRUGS (3)
  1. TWENTY UNKNOWN MEDICATIONS [Concomitant]
     Indication: DRUG USE FOR UNKNOWN INDICATION
     Dosage: DAILY DOSE:  UNKNOWN
     Route: 065
  2. ANDROGEL [Suspect]
     Indication: DRUG USE FOR UNKNOWN INDICATION
     Dosage: DAILY DOSE: 5 GRAM(S) VIA PUMP
     Route: 062
  3. ANDROGEL [Suspect]
     Dosage: DAILY DOSE: 1.25 GRAM(S) VIA PUMP
     Route: 062
     Dates: start: 20080729, end: 20080731

REACTIONS (8)
  - ABDOMINAL PAIN UPPER [None]
  - DIARRHOEA [None]
  - DYSPNOEA [None]
  - FEELING ABNORMAL [None]
  - HEADACHE [None]
  - INCORRECT DOSE ADMINISTERED [None]
  - PNEUMONIA [None]
  - THYROID PAIN [None]
